FAERS Safety Report 23559028 (Version 2)
Quarter: 2024Q3

REPORT INFORMATION
  Report Type: Spontaneous
  Country: US (occurrence: US)
  Receive Date: 20240223
  Receipt Date: 20240830
  Transmission Date: 20241017
  Serious: No
  Sender: BAYER
  Company Number: US-BAYER-2024A028686

PATIENT
  Age: 40 Year
  Sex: Female

DRUGS (1)
  1. MIRENA [Suspect]
     Active Substance: LEVONORGESTREL
     Indication: Intrauterine contraception
     Dosage: 20?G/DAY
     Route: 015
     Dates: start: 202311, end: 20240105

REACTIONS (5)
  - Device expulsion [Recovered/Resolved]
  - Pelvic pain [None]
  - Intermenstrual bleeding [None]
  - Amenorrhoea [None]
  - Procedural haemorrhage [None]
